FAERS Safety Report 15672309 (Version 2)
Quarter: 2019Q3

REPORT INFORMATION
  Report Type: Report from Study
  Country: US (occurrence: US)
  Receive Date: 20181129
  Receipt Date: 20190927
  Transmission Date: 20191004
  Serious: No
  Sender: FDA-Public Use
  Company Number: US-TESARO-US-2017TSO00728

PATIENT
  Age: 67 Year
  Sex: Female

DRUGS (2)
  1. NIRAPARIB CAPSULE [Suspect]
     Active Substance: NIRAPARIB
     Dosage: 200 MG, QD
     Route: 048
     Dates: start: 20180314
  2. NIRAPARIB CAPSULE [Suspect]
     Active Substance: NIRAPARIB
     Dosage: 300 MG, QD
     Route: 048
     Dates: start: 20170530

REACTIONS (6)
  - Dyspnoea [Recovering/Resolving]
  - Nausea [Not Recovered/Not Resolved]
  - Dyspnoea exertional [Recovered/Resolved]
  - Blood count abnormal [Not Recovered/Not Resolved]
  - Performance status decreased [Unknown]
  - Sleep disorder [Recovered/Resolved]

NARRATIVE: CASE EVENT DATE: 201706
